FAERS Safety Report 17044512 (Version 2)
Quarter: 2020Q1

REPORT INFORMATION
  Report Type: Spontaneous
  Country: FR (occurrence: FR)
  Receive Date: 20191118
  Receipt Date: 20200110
  Transmission Date: 20200409
  Serious: Yes (Death)
  Sender: FDA-Public Use
  Company Number: FR-ASTRAZENECA-2019SF63756

PATIENT
  Age: 24543 Day
  Sex: Male
  Weight: 89 kg

DRUGS (1)
  1. IMFINZI [Suspect]
     Active Substance: DURVALUMAB
     Indication: NON-SMALL CELL LUNG CANCER STAGE III
     Dosage: 10.0MG/KG UNKNOWN
     Route: 042
     Dates: start: 20190926, end: 20190926

REACTIONS (1)
  - Acute hepatitis B [Fatal]

NARRATIVE: CASE EVENT DATE: 20191010
